FAERS Safety Report 5957128-4 (Version None)
Quarter: 2008Q4

REPORT INFORMATION
  Report Type: 
  Country: None (occurrence: None)
  Receive Date: 20081118
  Receipt Date: 20081106
  Transmission Date: 20090506
  Serious: Yes (Hospitalization)
  Sender: FDA-Public Use
  Company Number: TH-PFIZER INC-2008094201

PATIENT
  Sex: Male
  Weight: 70 kg

DRUGS (2)
  1. CLINDAMYCIN HCL [Suspect]
     Indication: SINUSITIS
     Route: 048
     Dates: start: 20081001
  2. SULIDINE [Concomitant]
     Route: 048

REACTIONS (3)
  - MUSCULAR WEAKNESS [None]
  - PALPITATIONS [None]
  - RED MAN SYNDROME [None]
